FAERS Safety Report 14438143 (Version 2)
Quarter: 2018Q1

REPORT INFORMATION
  Report Type: Spontaneous
  Country: GB (occurrence: GB)
  Receive Date: 20180125
  Receipt Date: 20180212
  Transmission Date: 20180509
  Serious: Yes (Hospitalization, Other)
  Sender: FDA-Public Use
  Company Number: PHHY2017GB199526

PATIENT
  Age: 9 Year
  Sex: Female

DRUGS (4)
  1. METHOTREXATE. [Suspect]
     Active Substance: METHOTREXATE
     Indication: SARCOIDOSIS
     Dosage: 15 MG, QW
     Route: 065
  2. CHOLECALCIFEROL [Suspect]
     Active Substance: CHOLECALCIFEROL
     Dosage: 800 IU, QD
     Route: 065
  3. PREDNISOLONE. [Concomitant]
     Active Substance: PREDNISOLONE
     Indication: SARCOIDOSIS
     Dosage: 40 MG, QD
     Route: 048
  4. CHOLECALCIFEROL [Suspect]
     Active Substance: CHOLECALCIFEROL
     Indication: VITAMIN D DEFICIENCY
     Dosage: 20000 IU, UNK
     Route: 065

REACTIONS (13)
  - Hypercalcaemia [Recovered/Resolved]
  - Amylase increased [Recovered/Resolved]
  - Platelet count increased [Recovered/Resolved]
  - Weight decreased [Recovered/Resolved]
  - Vomiting [Recovered/Resolved]
  - C-reactive protein increased [Recovered/Resolved]
  - Pyrexia [Recovered/Resolved]
  - Ascites [Recovered/Resolved]
  - Urine calcium/creatinine ratio increased [Recovered/Resolved]
  - Pancreatitis acute [Recovered/Resolved]
  - Abdominal pain [Recovered/Resolved]
  - Off label use [Unknown]
  - Blood albumin decreased [Recovered/Resolved]
